FAERS Safety Report 4410445-1 (Version None)
Quarter: 2004Q3

REPORT INFORMATION
  Report Type: 
  Country: None (occurrence: None)
  Receive Date: 20040728
  Receipt Date: 20040511
  Transmission Date: 20050211
  Serious: Yes (Hospitalization, Other)
  Sender: FDA-Public Use
  Company Number: US-MERCK-0405USA00984

PATIENT
  Age: 81 Year
  Sex: Male

DRUGS (5)
  1. ALLOPURINOL [Concomitant]
     Route: 065
  2. ASPIRIN [Concomitant]
     Route: 065
  3. ARICEPT [Concomitant]
     Route: 065
  4. GLUCOTROL [Concomitant]
     Route: 065
  5. VIOXX [Suspect]
     Route: 065

REACTIONS (27)
  - ABDOMINAL PAIN UPPER [None]
  - ANGINA UNSTABLE [None]
  - AZOTAEMIA [None]
  - BRONCHITIS [None]
  - CARDIAC FAILURE CONGESTIVE [None]
  - CARDIOMEGALY [None]
  - CAROTID ARTERY STENOSIS [None]
  - CENTRAL LINE INFECTION [None]
  - CEREBRAL ARTERY OCCLUSION [None]
  - CHEST PAIN [None]
  - CHRONIC OBSTRUCTIVE AIRWAYS DISEASE [None]
  - CORONARY ARTERY RESTENOSIS [None]
  - DECREASED APPETITE [None]
  - DRESSLER'S SYNDROME [None]
  - FAECAL OCCULT BLOOD POSITIVE [None]
  - FAECES DISCOLOURED [None]
  - GASTROINTESTINAL HAEMORRHAGE [None]
  - HYPERBILIRUBINAEMIA [None]
  - HYPERLIPIDAEMIA [None]
  - HYPERTENSION [None]
  - LOOSE STOOLS [None]
  - MITRAL VALVE INCOMPETENCE [None]
  - MYOCARDIAL INFARCTION [None]
  - PERIPHERAL VASCULAR DISORDER [None]
  - RESPIRATORY FAILURE [None]
  - SKIN CANDIDA [None]
  - SUBCLAVIAN ARTERY STENOSIS [None]
